FAERS Safety Report 15409023 (Version 2)
Quarter: 2018Q3

REPORT INFORMATION
  Report Type: Spontaneous
  Country: DE (occurrence: DE)
  Receive Date: 20180920
  Receipt Date: 20180928
  Transmission Date: 20181010
  Serious: Yes (Hospitalization)
  Sender: FDA-Public Use
  Company Number: DE-MYLANLABS-2018M1068803

PATIENT
  Age: 86 Year
  Sex: Male
  Weight: 102 kg

DRUGS (8)
  1. RAMIPRIL. [Concomitant]
     Active Substance: RAMIPRIL
     Indication: PRODUCT USED FOR UNKNOWN INDICATION
     Dosage: 10 MG, QD,(10 MG, 0?0?1?0, TABLETTEN)
     Route: 048
  2. CLOPIDOGREL [Interacting]
     Active Substance: CLOPIDOGREL BISULFATE
     Indication: PRODUCT USED FOR UNKNOWN INDICATION
     Dosage: 75 MG, QD, (75 MG, 1?0?0?0, TABLET)
     Route: 048
  3. LANTUS [Concomitant]
     Active Substance: INSULIN GLARGINE
     Indication: PRODUCT USED FOR UNKNOWN INDICATION
     Dosage: 20 IU, QD( 20 IE, 1?0?0?0,INJECTION / INFUSION
     Route: 058
  4. ASPIRIN. [Concomitant]
     Active Substance: ASPIRIN
     Indication: PRODUCT USED FOR UNKNOWN INDICATION
     Dosage: 100 MG, QD,(100 MG, 1?0?0?0, TABLET
     Route: 048
  5. METOPROLOL. [Concomitant]
     Active Substance: METOPROLOL
     Indication: PRODUCT USED FOR UNKNOWN INDICATION
     Dosage: 47.5 MG, QD,(47.5 MG, 1?0?0?0, TABLET
     Route: 048
  6. PANTOPRAZOLE MYLAN [Suspect]
     Active Substance: PANTOPRAZOLE SODIUM
     Indication: PRODUCT USED FOR UNKNOWN INDICATION
     Dosage: 40 MG, QD,(40 MG, 1?0?0?0, TABLET
     Route: 048
  7. SIMVASTATIN. [Concomitant]
     Active Substance: SIMVASTATIN
     Indication: PRODUCT USED FOR UNKNOWN INDICATION
     Dosage: 40 MG, QD,(40 MG, 0?0?1?0, TABLET
     Route: 048
  8. FUROSEMID                          /00032601/ [Concomitant]
     Active Substance: FUROSEMIDE
     Indication: PRODUCT USED FOR UNKNOWN INDICATION
     Dosage: 40 MG, QD,(40 MG, 1?0.5?0?0, TABLET
     Route: 048

REACTIONS (12)
  - Hypertension [Unknown]
  - General physical health deterioration [Unknown]
  - Confusional state [Unknown]
  - Off label use [Unknown]
  - Oedema peripheral [Unknown]
  - Drug interaction [Unknown]
  - Dizziness [Unknown]
  - Dyspnoea [Unknown]
  - Weight increased [Unknown]
  - Upper motor neurone lesion [Unknown]
  - Fatigue [Unknown]
  - Dysarthria [Unknown]

NARRATIVE: CASE EVENT DATE: 20161107
